FAERS Safety Report 9196403 (Version 1)
Quarter: 2013Q1

REPORT INFORMATION
  Report Type: Report from Study
  Country: CO (occurrence: CO)
  Receive Date: 20130328
  Receipt Date: 20130328
  Transmission Date: 20140127
  Serious: Yes (Hospitalization)
  Sender: FDA-Public Use
  Company Number: CO-SANOFI-AVENTIS-200615149EU

PATIENT
  Age: 67 Year
  Sex: Female

DRUGS (6)
  1. ENOXAPARIN SODIUM [Suspect]
     Indication: THROMBOSIS PROPHYLAXIS
     Route: 058
     Dates: start: 20060918, end: 20060927
  2. ACETAMINOPHEN [Concomitant]
  3. METOPROLOL [Concomitant]
     Indication: HYPERTENSION
     Dosage: DOSE UNIT: 50 MG
     Route: 048
     Dates: end: 20060925
  4. METOCLOPRAMIDE [Concomitant]
  5. OMEPRAZOLE [Concomitant]
  6. TRAZODONE [Concomitant]

REACTIONS (1)
  - Oliguria [Recovered/Resolved]
